FAERS Safety Report 4519273-X (Version None)
Quarter: 2004Q4

REPORT INFORMATION
  Report Type: 
  Country: None (occurrence: None)
  Receive Date: 20041206
  Receipt Date: 20041125
  Transmission Date: 20050328
  Serious: Yes (Hospitalization)
  Sender: FDA-Public Use
  Company Number: FR-BRISTOL-MYERS SQUIBB COMPANY-12776779

PATIENT
  Age: 63 Year
  Sex: Female

DRUGS (3)
  1. AMIKACIN SULFATE [Suspect]
     Route: 042
     Dates: start: 20040414, end: 20040417
  2. LOVENOX [Suspect]
     Route: 058
     Dates: start: 20040414, end: 20040418
  3. TAZOCILLINE [Suspect]
     Route: 042
     Dates: start: 20040414, end: 20040417

REACTIONS (1)
  - THROMBOCYTOPENIA [None]
